FAERS Safety Report 15659617 (Version 4)
Quarter: 2019Q3

REPORT INFORMATION
  Report Type: Spontaneous
  Country: CA (occurrence: CA)
  Receive Date: 20181127
  Receipt Date: 20190909
  Transmission Date: 20191004
  Serious: Yes (Other)
  Sender: FDA-Public Use
  Company Number: CA-TEVA-2018-CA-980433

PATIENT
  Age: 59 Year
  Sex: Male

DRUGS (8)
  1. TETRABENAZINE. [Concomitant]
     Active Substance: TETRABENAZINE
     Indication: AKATHISIA
     Route: 065
  2. GABAPENTIN. [Suspect]
     Active Substance: GABAPENTIN
     Indication: TARDIVE DYSKINESIA
     Route: 065
  3. TETRABENAZINE. [Concomitant]
     Active Substance: TETRABENAZINE
     Indication: TARDIVE DYSKINESIA
  4. BENZTROPINE. [Suspect]
     Active Substance: BENZTROPINE
     Indication: TARDIVE DYSKINESIA
     Route: 065
  5. BENZTROPINE. [Suspect]
     Active Substance: BENZTROPINE
     Indication: AKATHISIA
     Route: 065
  6. PROPRANOLOL [Suspect]
     Active Substance: PROPRANOLOL HYDROCHLORIDE
     Indication: AKATHISIA
     Route: 065
  7. PROPRANOLOL [Suspect]
     Active Substance: PROPRANOLOL HYDROCHLORIDE
     Indication: TARDIVE DYSKINESIA
  8. GABAPENTIN. [Suspect]
     Active Substance: GABAPENTIN
     Indication: AKATHISIA

REACTIONS (4)
  - Product use in unapproved indication [Unknown]
  - Drug ineffective [Unknown]
  - Off label use [Unknown]
  - Product use issue [Unknown]
